FAERS Safety Report 4620394-1 (Version None)
Quarter: 2005Q1

REPORT INFORMATION
  Report Type: 
  Country: None (occurrence: None)
  Receive Date: 20050321
  Receipt Date: 20050321
  Transmission Date: 20050727
  Serious: Yes (Other)
  Sender: FDA-Public Use
  Company Number: None

PATIENT
  Age: 54 Year
  Sex: Female
  Weight: 56.6996 kg

DRUGS (2)
  1. CELEBREX [Suspect]
     Indication: OSTEOARTHRITIS
     Dosage: 1 PER DAY   ORAL
     Route: 048
     Dates: start: 20040606, end: 20040614
  2. CELEBREX [Suspect]
     Indication: OSTEOARTHRITIS
     Dosage: 1 PER DAY   ORAL
     Route: 048
     Dates: start: 20040910, end: 20040918

REACTIONS (2)
  - HYPOAESTHESIA [None]
  - PARAESTHESIA [None]
